FAERS Safety Report 10939956 (Version 5)
Quarter: 2017Q1

REPORT INFORMATION
  Report Type: Spontaneous
  Country: US (occurrence: US)
  Receive Date: 20150322
  Receipt Date: 20170116
  Transmission Date: 20170428
  Serious: No
  Sender: FDA-Public Use
  Company Number: US-JNJFOC-20150206284

PATIENT
  Sex: Male

DRUGS (1)
  1. RISPERDAL [Suspect]
     Active Substance: RISPERIDONE
     Indication: AUTISM
     Route: 048
     Dates: start: 2001, end: 2007

REACTIONS (5)
  - Gynaecomastia [Unknown]
  - Somnolence [Unknown]
  - Weight increased [Unknown]
  - Emotional disorder [Unknown]
  - Depression [Unknown]
